FAERS Safety Report 5954544-1 (Version None)
Quarter: 2008Q4

REPORT INFORMATION
  Report Type: 
  Country: None (occurrence: None)
  Receive Date: 20081117
  Receipt Date: 20081106
  Transmission Date: 20090506
  Serious: Yes (Hospitalization)
  Sender: FDA-Public Use
  Company Number: US-ROCHE-587357

PATIENT
  Age: 54 Year
  Sex: Male

DRUGS (10)
  1. KLONOPIN [Suspect]
     Indication: ANXIETY
     Dosage: OTHER INDICATION REPORTED AS PANIC OTHER FORM: WAFERS DIFFERENT DOSES RECEIVED
     Route: 065
     Dates: start: 20000101
  2. KLONOPIN [Suspect]
     Route: 065
  3. NARDIL [Concomitant]
  4. SEROQUEL [Concomitant]
  5. ALOPURINOL [Concomitant]
  6. LASIX [Concomitant]
  7. ASPIRIN [Concomitant]
  8. MULTI-VITAMIN [Concomitant]
  9. ASCORBIC ACID [Concomitant]
  10. 1 CONCOMITANT DRUG [Concomitant]
     Dosage: DRUG REPORTED AS: URATHAL.
     Dates: start: 20080919

REACTIONS (9)
  - BLOOD URIC ACID INCREASED [None]
  - EJACULATION DELAYED [None]
  - ERECTILE DYSFUNCTION [None]
  - MICTURITION URGENCY [None]
  - OBSESSIVE-COMPULSIVE DISORDER [None]
  - OEDEMA [None]
  - PSYCHOTIC BEHAVIOUR [None]
  - SEXUAL DYSFUNCTION [None]
  - URINE FLOW DECREASED [None]
